FAERS Safety Report 11935960 (Version 2)
Quarter: 2016Q1

REPORT INFORMATION
  Report Type: Spontaneous
  Country: US (occurrence: US)
  Receive Date: 20160121
  Receipt Date: 20160224
  Transmission Date: 20160526
  Serious: No
  Sender: FDA-Public Use
  Company Number: US-ASTRAZENECA-2016SE03965

PATIENT
  Sex: Female

DRUGS (2)
  1. SYMBICORT [Suspect]
     Active Substance: BUDESONIDE\FORMOTEROL FUMARATE DIHYDRATE
     Indication: BRONCHITIS CHRONIC
     Dosage: 160-4.5 MICROGRAMS TWO PUFFS TWICE A DAY
     Route: 055
     Dates: start: 201507
  2. TUDORZA PRESSAIR [Concomitant]
     Active Substance: ACLIDINIUM BROMIDE
     Indication: BRONCHITIS CHRONIC
     Dosage: 400 MICROGRAMS, ONE PUFF TWO TIMES A DAY
     Route: 055
     Dates: start: 201507

REACTIONS (3)
  - Dyspnoea [Unknown]
  - Device failure [Unknown]
  - Drug ineffective [Unknown]
